FAERS Safety Report 4296397-6 (Version None)
Quarter: 2004Q1

REPORT INFORMATION
  Report Type: 
  Country: None (occurrence: None)
  Receive Date: 20040213
  Receipt Date: 20040213
  Transmission Date: 20041129
  Serious: Yes (Hospitalization)
  Sender: FDA-Public Use
  Company Number: None

PATIENT
  Age: 68 Year
  Sex: Female
  Weight: 55.7924 kg

DRUGS (3)
  1. TAXOL [Suspect]
     Indication: PANCREATIC CARCINOMA
     Dosage: DOSE REDUCED 50%  IV
     Route: 042
     Dates: start: 20031111, end: 20031223
  2. GEMZAR [Suspect]
     Dosage: DOSE REDUCED 50%  IV
     Route: 042
  3. RADIATION THERAPY [Concomitant]

REACTIONS (3)
  - ABDOMINAL WALL ABSCESS [None]
  - ANOREXIA [None]
  - INFECTION [None]
